FAERS Safety Report 8131320-5 (Version None)
Quarter: 2012Q1

REPORT INFORMATION
  Report Type: 
  Country: None (occurrence: None)
  Receive Date: 20120213
  Receipt Date: 20120131
  Transmission Date: 20120608
  Serious: Yes (Hospitalization)
  Sender: FDA-Public Use
  Company Number: BE-JNJFOC-20120109205

PATIENT
  Age: 19 Year
  Sex: Male
  Weight: 49 kg

DRUGS (8)
  1. REMICADE [Suspect]
     Route: 042
     Dates: start: 20100722
  2. REMICADE [Suspect]
     Route: 042
     Dates: start: 20100819
  3. REMICADE [Suspect]
     Route: 042
     Dates: start: 20110518
  4. REMICADE [Suspect]
     Route: 042
     Dates: start: 20101130
  5. REMICADE [Suspect]
     Route: 042
     Dates: start: 20100708
  6. REMICADE [Suspect]
     Route: 042
     Dates: start: 20110315
  7. REMICADE [Suspect]
     Route: 042
     Dates: start: 20110415
  8. REMICADE [Suspect]
     Indication: COLITIS ULCERATIVE
     Route: 042
     Dates: start: 20110118

REACTIONS (1)
  - COLITIS ULCERATIVE [None]
